FAERS Safety Report 19230136 (Version 2)
Quarter: 2021Q2

REPORT INFORMATION
  Report Type: Spontaneous
  Country: US (occurrence: US)
  Receive Date: 20210506
  Receipt Date: 20210518
  Transmission Date: 20210717
  Serious: No
  Sender: FDA-Public Use
  Company Number: US-SA-2021SA133178

PATIENT
  Age: 32 Year
  Sex: Female

DRUGS (1)
  1. LOVENOX [Suspect]
     Active Substance: ENOXAPARIN SODIUM
     Indication: HAEMORRHAGE
     Dosage: 40 MG, QD
     Dates: start: 20210131

REACTIONS (3)
  - Exposure during pregnancy [Unknown]
  - Product container seal issue [Unknown]
  - Product packaging issue [Unknown]
